FAERS Safety Report 10600482 (Version 1)
Quarter: 2014Q4

REPORT INFORMATION
  Report Type: Spontaneous
  Country: US (occurrence: US)
  Receive Date: 20141124
  Receipt Date: 20141124
  Transmission Date: 20150529
  Serious: Yes (Other)
  Sender: FDA-Public Use
  Company Number: US-CIPLA LTD.-2014US01978

PATIENT

DRUGS (2)
  1. IRINOTECAN [Suspect]
     Active Substance: IRINOTECAN
     Indication: COLORECTAL CANCER
  2. IRINOTECAN [Suspect]
     Active Substance: IRINOTECAN
     Indication: METASTASES TO LIVER
     Dosage: SMALL BEADS (50 MG/ML FOR A TOTAL DOSE OF 100 MG PER)

REACTIONS (1)
  - Disease progression [Unknown]
